FAERS Safety Report 10952414 (Version 1)
Quarter: 2015Q1

REPORT INFORMATION
  Report Type: Spontaneous
  Country: US (occurrence: None)
  Receive Date: 20150226
  Receipt Date: 20150226
  Transmission Date: 20150721
  Serious: Yes (Other)
  Sender: FDA-Public Use
  Company Number: TPA2012A02573

PATIENT
  Age: 72 Year
  Sex: Male
  Weight: 88.45 kg

DRUGS (3)
  1. ACTOS [Suspect]
     Active Substance: PIOGLITAZONE HYDROCHLORIDE
     Indication: TYPE 2 DIABETES MELLITUS
     Dates: start: 200012, end: 200403
  2. GLUCOTROL [Concomitant]
     Active Substance: GLIPIZIDE
  3. GLIPIZIDE XL (GLIPIZIDE) [Concomitant]

REACTIONS (4)
  - Bladder cancer [None]
  - Cystitis [None]
  - Bladder operation [None]
  - Urinary tract infection [None]

NARRATIVE: CASE EVENT DATE: 20110218
